FAERS Safety Report 4309524-9 (Version None)
Quarter: 2004Q1

REPORT INFORMATION
  Report Type: 
  Country: None (occurrence: None)
  Receive Date: 20040301
  Receipt Date: 20040220
  Transmission Date: 20041129
  Serious: Yes (Life-Threatening, Hospitalization)
  Sender: FDA-Public Use
  Company Number: 2004-02-1057

PATIENT
  Age: 44 Year
  Sex: Male

DRUGS (6)
  1. PEG-INTRON [Suspect]
     Indication: HEPATITIS C
     Dosage: 150 MCG SUBCUTANEOUS
     Route: 058
     Dates: start: 20040123, end: 20040209
  2. REBETOL [Suspect]
     Indication: HEPATITIS C
     Dosage: 800 MG ORAL
     Route: 048
     Dates: start: 20040123, end: 20040209
  3. HYDROCHLOROTHIAZIDE [Concomitant]
  4. HYDROCODONE BITARTRATE + ACETAMINOPHEN [Concomitant]
  5. LISINOPRIL [Concomitant]
  6. PROZAC [Concomitant]

REACTIONS (4)
  - CULTURE URINE POSITIVE [None]
  - CULTURE WOUND POSITIVE [None]
  - NEUTROPENIA [None]
  - TOXIC SHOCK SYNDROME STAPHYLOCOCCAL [None]
